FAERS Safety Report 6063481-6 (Version None)
Quarter: 2009Q1

REPORT INFORMATION
  Report Type: 
  Country: None (occurrence: None)
  Receive Date: 20090203
  Receipt Date: 20090129
  Transmission Date: 20090719
  Serious: No
  Sender: FDA-Public Use
  Company Number: US-B.I. PHARMACEUTICALS,INC./RIDGEFIELD-2009-BP-01144BP

PATIENT
  Sex: Female

DRUGS (9)
  1. ZANTAC 150 [Suspect]
     Indication: NAUSEA
     Dosage: 150MG
     Route: 048
     Dates: start: 20090129, end: 20090129
  2. HYDROCODONE BITARTRATE [Suspect]
     Indication: SURGERY
  3. BISOPROLOL [Concomitant]
     Indication: HYPERTENSION
  4. SIMVASTATIN [Concomitant]
     Indication: BLOOD CHOLESTEROL INCREASED
  5. SULFADIAZINE [Concomitant]
     Indication: URINARY TRACT INFECTION
  6. IBUPROFEN [Concomitant]
     Indication: SWELLING
  7. NAPROXEN [Concomitant]
     Indication: SWELLING
  8. PROMETRIUM [Concomitant]
     Indication: HORMONE REPLACEMENT THERAPY
  9. ESTROGENIC SUBSTANCE [Concomitant]
     Indication: HORMONE REPLACEMENT THERAPY

REACTIONS (4)
  - ASTHENIA [None]
  - DIZZINESS [None]
  - NAUSEA [None]
  - VOMITING [None]
